FAERS Safety Report 16984641 (Version 3)
Quarter: 2020Q1

REPORT INFORMATION
  Report Type: Spontaneous
  Country: US (occurrence: US)
  Receive Date: 20191101
  Receipt Date: 20200103
  Transmission Date: 20200409
  Serious: Yes (Hospitalization, Other)
  Sender: FDA-Public Use
  Company Number: US-PFIZER INC-2019470945

PATIENT
  Age: 72 Year
  Sex: Male
  Weight: 92.63 kg

DRUGS (9)
  1. SUTENT [Suspect]
     Active Substance: SUNITINIB MALATE
     Dosage: 50 MG, CYCLIC [EVERY DAY FOR 28 DAYS FOR EVERY 42 DAY CYCLE (28 DAYS ON, 14 OFF)]
     Route: 048
     Dates: start: 20190326, end: 20191106
  2. SUTENT [Suspect]
     Active Substance: SUNITINIB MALATE
     Indication: BRAIN NEOPLASM MALIGNANT
     Dosage: 50 MG, CYCLIC [EVERY DAY FOR 28 DAYS FOR EVERY 42 DAY CYCLE (28 DAYS ON, 14 OFF)]
     Route: 048
     Dates: start: 20191025, end: 20191104
  3. ATORVASTATIN [Concomitant]
     Active Substance: ATORVASTATIN
     Dosage: 20 MG, 1X/DAY
  4. GABAPENTIN. [Concomitant]
     Active Substance: GABAPENTIN
     Indication: SEIZURE
     Dosage: 600 MG, 2X/DAY
     Dates: start: 20181025
  5. ENOXAPARIN [Concomitant]
     Active Substance: ENOXAPARIN
     Indication: THROMBOSIS
     Dosage: 0.9 ML, 2X/DAY (100 MG 1 SHOT EVERY 12 HOURS)
     Route: 058
     Dates: start: 20191015
  6. LEVETIRACETAM. [Concomitant]
     Active Substance: LEVETIRACETAM
     Indication: SEIZURE PROPHYLAXIS
     Dosage: 1500 MG, 2X/DAY
     Dates: start: 201509
  7. LISINOPRIL/HYDROCHLOORTHIAZIDE [Concomitant]
     Active Substance: HYDROCHLOROTHIAZIDE\LISINOPRIL
     Dosage: 20-25 MG TAB 1 PER DAY
  8. GABAPENTIN. [Concomitant]
     Active Substance: GABAPENTIN
     Indication: NERVE INJURY
  9. LISINOPRIL + HIDROCLOROTIAZIDA [Concomitant]
     Active Substance: HYDROCHLOROTHIAZIDE\LISINOPRIL
     Dosage: UNK, 1X/DAY(LISINOPRIL-20/HYDROCHLOROTHIAZIDE 25 MG )

REACTIONS (19)
  - Dehydration [Recovered/Resolved]
  - Gait disturbance [Recovered/Resolved]
  - Feeling hot [Recovered/Resolved]
  - Arthralgia [Recovered/Resolved]
  - Decreased appetite [Recovered/Resolved]
  - Fall [Recovered/Resolved]
  - Chills [Recovered/Resolved]
  - Balance disorder [Recovered/Resolved]
  - Diarrhoea [Recovered/Resolved]
  - Peripheral swelling [Recovered/Resolved]
  - Stomatitis [Recovered/Resolved]
  - Product use in unapproved indication [Recovered/Resolved]
  - Muscular weakness [Recovered/Resolved]
  - Confusional state [Recovered/Resolved]
  - Renal failure [Recovered/Resolved]
  - Blood pressure decreased [Recovered/Resolved]
  - Off label use [Recovered/Resolved]
  - Pain in extremity [Recovered/Resolved]
  - Erythema [Recovered/Resolved]

NARRATIVE: CASE EVENT DATE: 20190326
